FAERS Safety Report 20947270 (Version 1)
Quarter: 2022Q2

REPORT INFORMATION
  Report Type: Spontaneous
  Country: BR (occurrence: BR)
  Receive Date: 20220610
  Receipt Date: 20220610
  Transmission Date: 20220721
  Serious: Yes (Hospitalization, Other)
  Sender: FDA-Public Use
  Company Number: BR-MALLINCKRODT-T202202911

PATIENT
  Age: 55 Year
  Sex: Male

DRUGS (6)
  1. UVADEX [Suspect]
     Active Substance: METHOXSALEN
     Indication: Cutaneous T-cell lymphoma
     Dosage: UNK (EXTRACORPOREAL, FIRST CYCLE)
     Route: 050
     Dates: start: 20200210
  2. UVADEX [Suspect]
     Active Substance: METHOXSALEN
     Dosage: UNK (EXTRACORPOREAL, SECOND CYCLE, SUBSEQUENT CYCLES A TOTAL OF 5 CYCLES (10 SESSIONS OF ECP) WERE P
     Route: 050
     Dates: start: 2020
  3. UVADEX [Suspect]
     Active Substance: METHOXSALEN
     Dosage: UNK (EXTRACORPOREAL, THIRD CYCLE)
     Route: 050
     Dates: start: 2020
  4. UVADEX [Suspect]
     Active Substance: METHOXSALEN
     Dosage: UNK (EXTRACORPOREAL, ECP WAS SUSPENDED FOR ONE CYCLE AND RESUMED, FOURTH CYCLE)
     Route: 050
     Dates: start: 20200422
  5. UVADEX [Suspect]
     Active Substance: METHOXSALEN
     Dosage: UNK (EXTRACORPOREAL, FIFTH CYCLE)
     Route: 050
     Dates: start: 20200526
  6. INTERFERON [Concomitant]
     Active Substance: INTERFERON
     Indication: Product used for unknown indication
     Dosage: UNK
     Route: 065

REACTIONS (6)
  - Dermatitis bullous [Not Recovered/Not Resolved]
  - Pemphigoid [Not Recovered/Not Resolved]
  - Drug eruption [Not Recovered/Not Resolved]
  - Dermatitis exfoliative generalised [Not Recovered/Not Resolved]
  - Condition aggravated [Not Recovered/Not Resolved]
  - Pyrexia [Unknown]

NARRATIVE: CASE EVENT DATE: 20200101
